FAERS Safety Report 14195735 (Version 1)
Quarter: 2017Q4

REPORT INFORMATION
  Report Type: Spontaneous
  Country: CN (occurrence: CN)
  Receive Date: 20171116
  Receipt Date: 20171116
  Transmission Date: 20180321
  Serious: Yes (Death, Other)
  Sender: FDA-Public Use
  Company Number: CN-MYLANLABS-2017M1071924

PATIENT
  Age: 25 Year
  Sex: Female

DRUGS (4)
  1. ETOPOSIDE. [Suspect]
     Active Substance: ETOPOSIDE
     Indication: LANGERHANS^ CELL HISTIOCYTOSIS
     Route: 065
  2. INTERFERON ALPHA 1-A [Suspect]
     Active Substance: INTERFERON ALFA-1A
     Indication: LANGERHANS^ CELL HISTIOCYTOSIS
     Route: 065
  3. DEXAMETHASONE. [Suspect]
     Active Substance: DEXAMETHASONE
     Indication: LANGERHANS^ CELL HISTIOCYTOSIS
     Route: 065
  4. THALIDOMIDE [Suspect]
     Active Substance: THALIDOMIDE
     Indication: LANGERHANS^ CELL HISTIOCYTOSIS
     Route: 065

REACTIONS (2)
  - Shock [Fatal]
  - Pancytopenia [Fatal]
